FAERS Safety Report 20751866 (Version 3)
Quarter: 2022Q3

REPORT INFORMATION
  Report Type: Report from Study
  Country: US (occurrence: US)
  Receive Date: 20220426
  Receipt Date: 20220823
  Transmission Date: 20221026
  Serious: Yes (Other)
  Sender: FDA-Public Use
  Company Number: US-TAKEDA-US202025983

PATIENT
  Age: 60 Year
  Sex: Female

DRUGS (1)
  1. HUMAN IMMUNOGLOBULIN G [Suspect]
     Active Substance: HUMAN IMMUNOGLOBULIN G
     Indication: Primary immunodeficiency syndrome
     Dosage: 15 GRAM, 1/WEEK
     Route: 058

REACTIONS (11)
  - Basedow^s disease [Unknown]
  - Oropharyngeal discomfort [Unknown]
  - Throat clearing [Unknown]
  - Cough [Unknown]
  - Arthritis [Unknown]
  - Traumatic shock [Unknown]
  - Chest discomfort [Unknown]
  - Emotional distress [Unknown]
  - Bronchitis [Not Recovered/Not Resolved]
  - Therapy interrupted [Unknown]
  - Inability to afford medication [Unknown]

NARRATIVE: CASE EVENT DATE: 20200810
